FAERS Safety Report 6016817-6 (Version None)
Quarter: 2008Q4

REPORT INFORMATION
  Report Type: 
  Country: None (occurrence: None)
  Receive Date: 20081219
  Receipt Date: 20081209
  Transmission Date: 20090506
  Serious: Yes (Hospitalization)
  Sender: FDA-Public Use
  Company Number: ENT 2008-0187

PATIENT
  Age: 82 Year
  Sex: Male

DRUGS (4)
  1. COMTAN [Suspect]
     Indication: PARKINSON'S DISEASE
     Dosage: 600 MG (200 MG, 3 IN 1 D)
     Route: 048
     Dates: start: 20081001, end: 20081101
  2. PROLOPA [Concomitant]
  3. REQUIP [Concomitant]
  4. CARDIO ASPIRINA [Concomitant]

REACTIONS (4)
  - CATHETER RELATED INFECTION [None]
  - DEHYDRATION [None]
  - DIARRHOEA [None]
  - PSEUDOMONAL SEPSIS [None]
